FAERS Safety Report 8563518-6 (Version None)
Quarter: 2012Q3

REPORT INFORMATION
  Report Type: 
  Country: None (occurrence: None)
  Receive Date: 20120802
  Receipt Date: 20120801
  Transmission Date: 20120928
  Serious: Yes (Hospitalization)
  Sender: FDA-Public Use
  Company Number: AT-AMGEN-AUTSP2012034574

PATIENT
  Age: 63 Year
  Sex: Male

DRUGS (6)
  1. PREDNISOLONE [Concomitant]
     Indication: CHEMOTHERAPY
     Dosage: 5 MG, UNK
     Dates: start: 20120411, end: 20120703
  2. CAL-D-VITA [Concomitant]
     Dosage: UNK UNK, QD
  3. FIRMAGON                           /01764801/ [Concomitant]
     Indication: PROSTATE CANCER METASTATIC
     Dosage: 80 MG, Q4WK
     Dates: start: 20110727
  4. XGEVA [Suspect]
     Indication: PROSTATE CANCER METASTATIC
     Dosage: 120 MG, Q4WK
     Dates: start: 20120403
  5. DOCETAXEL [Concomitant]
     Indication: PROSTATE CANCER METASTATIC
     Dosage: 75 MG/M2, UNK
     Dates: end: 20120613
  6. PANTOPRAZOLE SODIUM [Concomitant]
     Dosage: 40 MG, UNK

REACTIONS (1)
  - PULMONARY EMBOLISM [None]
